FAERS Safety Report 18218202 (Version 1)
Quarter: 2020Q3

REPORT INFORMATION
  Report Type: Spontaneous
  Country: US (occurrence: US)
  Receive Date: 20200901
  Receipt Date: 20200901
  Transmission Date: 20201103
  Serious: No
  Sender: FDA-Public Use
  Company Number: US-TARO-2020TAR01164

PATIENT

DRUGS (1)
  1. CLOBETASOL [Suspect]
     Active Substance: CLOBETASOL
     Indication: RASH
     Dosage: UNK
     Route: 061

REACTIONS (2)
  - Tinea infection [Not Recovered/Not Resolved]
  - Skin discolouration [Not Recovered/Not Resolved]
